FAERS Safety Report 24428440 (Version 4)
Quarter: 2024Q4

REPORT INFORMATION
  Report Type: Spontaneous
  Country: US (occurrence: US)
  Receive Date: 20241011
  Receipt Date: 20241216
  Transmission Date: 20250115
  Serious: No
  Sender: PFIZER
  Company Number: US-PFIZER INC-PV202400131484

PATIENT
  Age: 90 Year
  Sex: Female
  Weight: 65.6 kg

DRUGS (1)
  1. IBRANCE [Suspect]
     Active Substance: PALBOCICLIB
     Indication: Breast cancer female
     Dosage: 75 MG, CYCLIC (TAKE ONE TABLET BY MOUTH DAILY ON DAYS 1-21, THEN TAKE 7 DAYS OFF EVERY 28 DAYS)
     Route: 048

REACTIONS (22)
  - Paranasal sinus hypersecretion [Unknown]
  - Dyspnoea exertional [Unknown]
  - Pulmonary mass [Unknown]
  - Weight decreased [Unknown]
  - Blood pressure systolic increased [Unknown]
  - Blood pressure diastolic decreased [Unknown]
  - Oxygen saturation decreased [Unknown]
  - Blood sodium decreased [Unknown]
  - Blood chloride decreased [Unknown]
  - Blood glucose increased [Unknown]
  - Blood albumin decreased [Unknown]
  - Albumin globulin ratio decreased [Unknown]
  - Blood osmolarity decreased [Unknown]
  - Carbohydrate antigen 15-3 increased [Unknown]
  - Carbohydrate antigen 27.29 increased [Unknown]
  - Carbohydrate antigen 125 increased [Unknown]
  - Blood creatinine increased [Unknown]
  - Alanine aminotransferase increased [Unknown]
  - Aspartate aminotransferase increased [Unknown]
  - Asthenia [Unknown]
  - Fatigue [Unknown]
  - Malaise [Unknown]

NARRATIVE: CASE EVENT DATE: 20240101
